FAERS Safety Report 8068322-3 (Version None)
Quarter: 2012Q1

REPORT INFORMATION
  Report Type: 
  Country: None (occurrence: None)
  Receive Date: 20120124
  Receipt Date: 20111011
  Transmission Date: 20120608
  Serious: No
  Sender: FDA-Public Use
  Company Number: US-AMGEN-USASP2011052490

PATIENT
  Sex: Female

DRUGS (30)
  1. NAMENDA [Concomitant]
     Dosage: 2 MG, UNK
  2. ASPIRIN [Concomitant]
     Dosage: 1 MG, UNK
  3. MAGNESIUM OXIDE [Concomitant]
     Dosage: 1 MG, UNK
  4. SPIRONOLACTONE [Concomitant]
     Dosage: 1 MG, UNK
  5. LEXAPRO [Concomitant]
     Dosage: 1 MG, UNK
  6. OPTIVE LUBRICANT [Concomitant]
  7. VOLTAREN [Concomitant]
  8. ASTELIN                            /00085801/ [Concomitant]
  9. ENALAPRIL MALEATE [Concomitant]
     Dosage: 1 MG, UNK
  10. FENTANYL [Concomitant]
     Dosage: 50 MUG, UNK
  11. VITAMIN B12                        /00056201/ [Concomitant]
     Dosage: UNK
  12. OXYGEN [Concomitant]
     Dosage: UNK
  13. ENABLEX                            /01760401/ [Concomitant]
     Dosage: 1 MG, UNK
  14. VITAMIN E                          /00110501/ [Concomitant]
  15. VITAMIN E                          /00110501/ [Concomitant]
  16. ADVAIR DISKUS 100/50 [Concomitant]
     Dosage: UNK
  17. BEANO [Concomitant]
     Dosage: UNK
  18. VITAMIN C                          /00008001/ [Concomitant]
     Dosage: UNK MG, UNK
  19. ARICEPT [Concomitant]
     Dosage: 1 MG, UNK
  20. ALBUTEROL [Concomitant]
     Dosage: UNK
  21. NEURONTIN [Concomitant]
     Dosage: UNK
  22. FOSAMAX [Concomitant]
     Dosage: UNK
  23. FLONASE [Concomitant]
     Dosage: UNK
  24. PROLIA [Suspect]
     Indication: OSTEOPOROSIS POSTMENOPAUSAL
     Dosage: 60 MG, Q6MO
     Dates: start: 20110421
  25. LASIX [Concomitant]
     Dosage: 1 MG, UNK
  26. PRILOSEC [Concomitant]
     Dosage: 2 MG, UNK
  27. SYNTHROID [Concomitant]
     Dosage: 1 MUG, UNK
  28. CENTRUM SILVER                     /01292501/ [Concomitant]
     Dosage: UNK
  29. POTASSIUM CHLORIDE [Concomitant]
     Dosage: 1 MG, UNK
  30. CALCIUM W/VITAMIN D                /00188401/ [Concomitant]
     Dosage: 2 MG, UNK

REACTIONS (5)
  - LOCAL SWELLING [None]
  - LIMB INJURY [None]
  - MUSCLE SPASMS [None]
  - HYPOAESTHESIA [None]
  - CONTUSION [None]
